FAERS Safety Report 5443224-7 (Version None)
Quarter: 2007Q3

REPORT INFORMATION
  Report Type: 
  Country: None (occurrence: None)
  Receive Date: 20070905
  Receipt Date: 20070828
  Transmission Date: 20080115
  Serious: Yes (Hospitalization)
  Sender: FDA-Public Use
  Company Number: BR-AVENTIS-200717931GDDC

PATIENT
  Age: 25 Year
  Sex: Female
  Weight: 60 kg

DRUGS (7)
  1. LANTUS [Suspect]
     Route: 058
  2. LANTUS [Suspect]
     Route: 058
  3. OPTIPEN (INSULIN PUMP) [Suspect]
     Dates: start: 20050401
  4. NOVORAPID [Concomitant]
     Route: 058
     Dates: start: 20050401
  5. NOVORAPID [Concomitant]
     Route: 058
     Dates: start: 20050401
  6. NOVORAPID [Concomitant]
     Route: 058
     Dates: start: 20050401
  7. UNKNOWN DRUG [Concomitant]
     Dosage: DOSE QUANTITY: 3
     Route: 048
     Dates: start: 20070601

REACTIONS (4)
  - FLUID RETENTION [None]
  - HYPERGLYCAEMIA [None]
  - KETOACIDOSIS [None]
  - WEIGHT INCREASED [None]
